FAERS Safety Report 23363728 (Version 1)
Quarter: 2024Q1

REPORT INFORMATION
  Report Type: Spontaneous
  Country: CN (occurrence: CN)
  Receive Date: 20240103
  Receipt Date: 20240103
  Transmission Date: 20240410
  Serious: Yes (Hospitalization, Other)
  Sender: FDA-Public Use
  Company Number: None

PATIENT
  Age: 47 Year
  Sex: Female
  Weight: 57 kg

DRUGS (8)
  1. CYCLOPHOSPHAMIDE [Suspect]
     Active Substance: CYCLOPHOSPHAMIDE
     Indication: Acute lymphocytic leukaemia
     Dosage: 1.2 G, QD, DILUTED WITH 0.9% SODIUM CHLORIDE (250 ML)
     Route: 041
     Dates: start: 20231126, end: 20231126
  2. CYCLOPHOSPHAMIDE [Suspect]
     Active Substance: CYCLOPHOSPHAMIDE
     Indication: B-cell type acute leukaemia
     Dosage: 1.2 G, QD, DILUTED WITH 0.9% SODIUM CHLORIDE (250 ML)
     Route: 041
     Dates: start: 20231204, end: 20231204
  3. SODIUM CHLORIDE [Suspect]
     Active Substance: SODIUM CHLORIDE
     Indication: Medication dilution
     Dosage: 250 ML, QD, USED TO DILUTE 1.2 G OF CYCLOPHOSPHAMIDE, STRENGTH: 0.9%, DOSAGE FORM: INJECTION
     Route: 041
     Dates: start: 20231126, end: 20231126
  4. SODIUM CHLORIDE [Suspect]
     Active Substance: SODIUM CHLORIDE
     Dosage: 250 ML, QD, USED TO DILUTE 1.2 G OF CYCLOPHOSPHAMIDE, STRENGTH: 0.9%, DOSAGE FORM: INJECTION
     Route: 041
     Dates: start: 20231204, end: 20231204
  5. SODIUM CHLORIDE [Suspect]
     Active Substance: SODIUM CHLORIDE
     Dosage: 500 ML, QD, USED TO DILUTE 100 MG OF CYTARABINE HYDROCHLORIDE, STRENGTH: 0.9%, DOSAGE FORM: INJECTIO
     Route: 041
     Dates: start: 20231126, end: 20231128
  6. SODIUM CHLORIDE [Suspect]
     Active Substance: SODIUM CHLORIDE
     Dosage: 500 ML, QD, USED TO DILUTE 100 MG OF CYTARABINE HYDROCHLORIDE, STRENGTH: 0.9%, DOSAGE FORM: INJECTIO
     Route: 041
     Dates: start: 20231203, end: 20231205
  7. CYTARABINE HYDROCHLORIDE [Suspect]
     Active Substance: CYTARABINE HYDROCHLORIDE
     Indication: Acute lymphocytic leukaemia
     Dosage: 100 MG, QD, DILUTED WITH 0.9% SODIUM CHLORIDE (500 ML)
     Route: 041
     Dates: start: 20231126, end: 20231128
  8. CYTARABINE HYDROCHLORIDE [Suspect]
     Active Substance: CYTARABINE HYDROCHLORIDE
     Indication: B-cell type acute leukaemia
     Dosage: 100 MG, QD, DILUTED WITH 0.9% SODIUM CHLORIDE (500 ML)
     Route: 041
     Dates: start: 20231203, end: 20231205

REACTIONS (1)
  - Myelosuppression [Unknown]

NARRATIVE: CASE EVENT DATE: 20231205
